FAERS Safety Report 7651831-6 (Version None)
Quarter: 2011Q3

REPORT INFORMATION
  Report Type: 
  Country: None (occurrence: None)
  Receive Date: 20110803
  Receipt Date: 20110726
  Transmission Date: 20111222
  Serious: Yes (Hospitalization, Other)
  Sender: FDA-Public Use
  Company Number: US-BIOGENIDEC-2011BI019929

PATIENT
  Age: 53 Year
  Sex: Female

DRUGS (1)
  1. TYSABRI [Suspect]
     Indication: MULTIPLE SCLEROSIS
     Route: 042
     Dates: start: 20100212, end: 20110210

REACTIONS (3)
  - DRUG SPECIFIC ANTIBODY PRESENT [None]
  - CARDIAC FAILURE [None]
  - ARTERIAL OCCLUSIVE DISEASE [None]
